FAERS Safety Report 4993173-3 (Version None)
Quarter: 2006Q1

REPORT INFORMATION
  Report Type: 
  Country: None (occurrence: None)
  Receive Date: 20060313
  Receipt Date: 20051129
  Transmission Date: 20060701
  Serious: No
  Sender: FDA-Public Use
  Company Number: 2005-BP-18469BP

PATIENT
  Age: 86 Year
  Sex: Female

DRUGS (7)
  1. SPIRIVA [Suspect]
     Indication: CHRONIC OBSTRUCTIVE PULMONARY DISEASE
     Dosage: 18 MCG (18 MCG,1 IN 1 D),IH
  2. SPIRIVA [Suspect]
  3. CARDURA [Concomitant]
  4. VASERETIC (VASERETIC) [Concomitant]
  5. SYNTHROID [Concomitant]
  6. LOPID [Concomitant]
  7. ACTONEL [Concomitant]

REACTIONS (1)
  - AGEUSIA [None]
